FAERS Safety Report 8277636-3 (Version None)
Quarter: 2012Q1

REPORT INFORMATION
  Report Type: 
  Country: None (occurrence: None)
  Receive Date: 20120312
  Receipt Date: 20120125
  Transmission Date: 20120608
  Serious: No
  Sender: FDA-Public Use
  Company Number: 2012SP004856

PATIENT
  Age: 47 Year
  Sex: Male

DRUGS (2)
  1. SAPHRIS [Suspect]
     Indication: SCHIZOPHRENIA
     Dosage: 5 MG;BID
     Dates: start: 20120119
  2. SAPHRIS [Suspect]
     Indication: ANTISOCIAL PERSONALITY DISORDER
     Dosage: 5 MG;BID
     Dates: start: 20120119

REACTIONS (2)
  - INCORRECT ROUTE OF DRUG ADMINISTRATION [None]
  - TREATMENT NONCOMPLIANCE [None]
